FAERS Safety Report 24425206 (Version 1)
Quarter: 2024Q4

REPORT INFORMATION
  Report Type: Spontaneous
  Country: US (occurrence: US)
  Receive Date: 20241010
  Receipt Date: 20241010
  Transmission Date: 20250115
  Serious: Yes (Life-Threatening, Hospitalization, Other)
  Sender: MALLINCKRODT
  Company Number: US-MALLINCKRODT-MNK202406144

PATIENT
  Age: 7 Month
  Sex: Female

DRUGS (2)
  1. NITRIC OXIDE [Suspect]
     Active Substance: NITRIC OXIDE
     Indication: Respiratory failure
     Dosage: UNKNOWN
     Route: 055
  2. OXYGEN [Concomitant]
     Active Substance: OXYGEN
     Indication: Respiratory failure
     Dosage: UNKNOWN

REACTIONS (11)
  - Sepsis [Unknown]
  - Pneumonia staphylococcal [Unknown]
  - Pneumonia [Unknown]
  - Respiratory failure [Unknown]
  - Bronchopulmonary dysplasia [Unknown]
  - Microcephaly [Unknown]
  - Cerebral dysgenesis [Unknown]
  - Epilepsy [Unknown]
  - Interstitial lung disease [Unknown]
  - Pulmonary hypertension [Unknown]
  - Therapeutic product effect incomplete [Unknown]
